FAERS Safety Report 7927580-3 (Version None)
Quarter: 2011Q4

REPORT INFORMATION
  Report Type: 
  Country: None (occurrence: None)
  Receive Date: 20111118
  Receipt Date: 20111104
  Transmission Date: 20120403
  Serious: Yes (Hospitalization)
  Sender: FDA-Public Use
  Company Number: IN-ROCHE-1009756

PATIENT

DRUGS (1)
  1. ACTIVASE [Suspect]
     Indication: ISCHAEMIC STROKE
     Route: 042
     Dates: start: 20110101, end: 20110101

REACTIONS (1)
  - ARTERIAL OCCLUSIVE DISEASE [None]
